FAERS Safety Report 14287114 (Version 2)
Quarter: 2018Q1

REPORT INFORMATION
  Report Type: Spontaneous
  Country: MK (occurrence: MK)
  Receive Date: 20171214
  Receipt Date: 20180124
  Transmission Date: 20180509
  Serious: Yes (Other)
  Sender: FDA-Public Use
  Company Number: MK-ASTELLAS-2017US052760

PATIENT
  Age: 39 Year
  Sex: Female

DRUGS (1)
  1. PROGRAF [Suspect]
     Active Substance: TACROLIMUS\TACROLIMUS ANHYDROUS
     Indication: IMMUNOSUPPRESSANT DRUG THERAPY
     Route: 048
     Dates: start: 20171029, end: 20171031

REACTIONS (1)
  - Peripheral artery dissection [Not Recovered/Not Resolved]

NARRATIVE: CASE EVENT DATE: 20171031
